FAERS Safety Report 16914356 (Version 2)
Quarter: 2019Q4

REPORT INFORMATION
  Report Type: Spontaneous
  Country: US (occurrence: US)
  Receive Date: 20191014
  Receipt Date: 20191122
  Transmission Date: 20200122
  Serious: No
  Sender: FDA-Public Use
  Company Number: US-PFIZER INC-2019012326

PATIENT
  Age: 77 Year

DRUGS (1)
  1. DILANTIN [Suspect]
     Active Substance: PHENYTOIN
     Dosage: 50 MG, 1X/DAY (EVERY NIGHT AT BED TIME, QUANTITY FOR 90 DAYS)

REACTIONS (1)
  - Drug hypersensitivity [Unknown]
